FAERS Safety Report 12187131 (Version 1)
Quarter: 2016Q1

REPORT INFORMATION
  Report Type: Spontaneous
  Country: US (occurrence: None)
  Receive Date: 20160316
  Receipt Date: 20160316
  Transmission Date: 20160526
  Serious: Yes (Disabling)
  Sender: FDA-Public Use
  Company Number: None

PATIENT
  Age: 59 Year
  Sex: Male
  Weight: 88.45 kg

DRUGS (1)
  1. PENNSAID [Suspect]
     Active Substance: DICLOFENAC SODIUM
     Indication: CHONDRITIS
     Dosage: TOPICAL, 2X DAILY TWICE DAILY APPLIED TO A SURFACE, USUALLY THE SKIN
     Route: 061

REACTIONS (4)
  - Application site vesicles [None]
  - Application site pruritus [None]
  - Application site urticaria [None]
  - Application site rash [None]
